FAERS Safety Report 10880964 (Version 1)
Quarter: 2015Q1

REPORT INFORMATION
  Report Type: Spontaneous
  Country: AU (occurrence: None)
  Receive Date: 20150225
  Receipt Date: 20150225
  Transmission Date: 20150721
  Serious: Yes (Other)
  Sender: FDA-Public Use
  Company Number: 2014-21014

PATIENT
  Age: 78 Year
  Sex: Female

DRUGS (2)
  1. EYLEA [Suspect]
     Active Substance: AFLIBERCEPT
     Indication: AGE-RELATED MACULAR DEGENERATION
     Dosage: 2MG, LEFT EYE, INTRAOCULAR
     Route: 031
     Dates: start: 20140618
  2. CARDIZEM [Concomitant]
     Active Substance: DILTIAZEM HYDROCHLORIDE

REACTIONS (7)
  - Hypertension [None]
  - Age-related macular degeneration [None]
  - Fall [None]
  - Cataract [None]
  - Post procedural complication [None]
  - Skin abrasion [None]
  - Visual impairment [None]

NARRATIVE: CASE EVENT DATE: 2014
